FAERS Safety Report 24701124 (Version 1)
Quarter: 2024Q4

REPORT INFORMATION
  Report Type: Spontaneous
  Country: US (occurrence: US)
  Receive Date: 20241205
  Receipt Date: 20241205
  Transmission Date: 20250115
  Serious: Yes (Hospitalization, Other)
  Sender: CHEPLAPHARM
  Company Number: US-ROCHE-2413707

PATIENT
  Sex: Male
  Weight: 84.262 kg

DRUGS (17)
  1. VALGANCICLOVIR [Suspect]
     Active Substance: VALGANCICLOVIR
     Indication: Product used for unknown indication
     Dosage: 3 MONTHS X 3 MONTHS 06/08/2021
  2. CELLCEPT [Suspect]
     Active Substance: MYCOPHENOLATE MOFETIL
     Indication: Renal transplant
     Dosage: REPORTED AS: THE PATIENT STARTED THERAPY WITH ORAL MYCOPHENOLATE MOFETIL 250 MG FOR KIDNEY TRANSP...
     Route: 048
     Dates: start: 20190710
  3. CELLCEPT [Suspect]
     Active Substance: MYCOPHENOLATE MOFETIL
     Indication: Renal transplant
     Dosage: REPORTED AS: ON AN UNKNOWN DATE [...] SHE WAS ALSO TREATED WITH ORAL MYCOPHENOLATE MOFETIL 250 MG...
     Route: 048
  4. CELLCEPT [Suspect]
     Active Substance: MYCOPHENOLATE MOFETIL
     Indication: Renal transplant
     Dosage: REPORTED AS: ON AN UNKNOWN DATE [...] SHE WAS ALSO TREATED WITH ORAL MYCOPHENOLATE MOFETIL 250 MG...
     Route: 048
  5. MAGNESIUM OXIDE [Concomitant]
     Active Substance: MAGNESIUM OXIDE
     Route: 048
  6. SENSIPAR [Concomitant]
     Active Substance: CINACALCET HYDROCHLORIDE
     Indication: Hypercalcaemia
     Route: 048
     Dates: start: 20190828
  7. ATENOLOL [Concomitant]
     Active Substance: ATENOLOL
     Route: 048
  8. CLONIDINE [Concomitant]
     Active Substance: CLONIDINE
     Route: 048
  9. FLUCONAZOLE [Concomitant]
     Active Substance: FLUCONAZOLE
     Route: 048
  10. SULFAMETHOXAZOLE;TRIMIPRAMINE [Concomitant]
     Route: 048
  11. TRIMETHOPRIM [Concomitant]
     Active Substance: TRIMETHOPRIM
     Route: 048
  12. TACROLIMUS [Concomitant]
     Active Substance: TACROLIMUS
     Route: 048
  13. VITAMIN B12 [Concomitant]
     Active Substance: CYANOCOBALAMIN
     Route: 048
  14. CLONIDINE HYDROCHLORIDE [Concomitant]
     Active Substance: CLONIDINE HYDROCHLORIDE
     Route: 048
  15. LEVITRA [Concomitant]
     Active Substance: VARDENAFIL HYDROCHLORIDE
  16. AMLODIPINE [Concomitant]
     Active Substance: AMLODIPINE BESYLATE
     Route: 048
  17. VITAMINS [Concomitant]
     Active Substance: VITAMINS

REACTIONS (18)
  - Lower gastrointestinal haemorrhage [Recovering/Resolving]
  - Nephrogenic anaemia [Unknown]
  - Skin disorder [Unknown]
  - Glomerular filtration rate decreased [Unknown]
  - Blood calcium decreased [Unknown]
  - Acidosis [Unknown]
  - Aspartate aminotransferase decreased [Unknown]
  - BK virus infection [Recovered/Resolved]
  - Blood cholesterol increased [Unknown]
  - Blood creatine increased [Unknown]
  - Oedema peripheral [Unknown]
  - Blood glucose increased [Unknown]
  - Hypercalcaemia [Unknown]
  - Hyperlipidaemia [Unknown]
  - Hypomagnesaemia [Unknown]
  - Low density lipoprotein increased [Unknown]
  - Protein urine present [Unknown]
  - Steal syndrome [Unknown]
